FAERS Safety Report 9313593 (Version 1)
Quarter: 2013Q2

REPORT INFORMATION
  Report Type: Spontaneous
  Country: CA (occurrence: CA)
  Receive Date: 20130528
  Receipt Date: 20130528
  Transmission Date: 20140414
  Serious: Yes (Hospitalization)
  Sender: FDA-Public Use
  Company Number: CA-B.I. PHARMACEUTICALS,INC./RIDGEFIELD-2013-BI-09317BP

PATIENT
  Age: 58 Year
  Sex: Female
  Weight: 79.38 kg

DRUGS (2)
  1. MIRAPEX [Suspect]
     Indication: PERIODIC LIMB MOVEMENT DISORDER
     Route: 048
     Dates: start: 20011112, end: 201208
  2. MIRAPEX [Suspect]
     Indication: RESTLESS LEGS SYNDROME

REACTIONS (4)
  - Overdose [Unknown]
  - Obsessive-compulsive disorder [Recovered/Resolved]
  - Pathological gambling [Recovered/Resolved]
  - Hypersexuality [Recovered/Resolved]
